FAERS Safety Report 21405223 (Version 5)
Quarter: 2022Q4

REPORT INFORMATION
  Report Type: Report from Study
  Country: AT (occurrence: None)
  Receive Date: 20221004
  Receipt Date: 20221212
  Transmission Date: 20230113
  Serious: Yes (Life-Threatening, Hospitalization)
  Sender: FDA-Public Use
  Company Number: AT-ROCHE-3189155

PATIENT
  Sex: Male
  Weight: 59 kg

DRUGS (15)
  1. EMICIZUMAB [Suspect]
     Active Substance: EMICIZUMAB
     Indication: Acquired haemophilia
     Dosage: ACTUAL DOSE: 1.5 MG/KG?ON 22/SEP/2022, THE MOST RECENT DOSE OF DRUG WAS GIVEN PRIOR TO SAE?ON 26/JUL
     Route: 058
     Dates: start: 20220510, end: 20220726
  2. ESOMEPRAZOLE [Concomitant]
     Active Substance: ESOMEPRAZOLE
     Indication: Prophylaxis
     Route: 048
  3. BISOPROLOL FUMARATE [Concomitant]
     Active Substance: BISOPROLOL FUMARATE
     Indication: Coronary artery disease
     Route: 048
  4. TAMSULOSIN [Concomitant]
     Active Substance: TAMSULOSIN
     Indication: Prostatomegaly
     Route: 048
  5. CALCIUM ACETATE\MAGNESIUM CARBONATE [Concomitant]
     Active Substance: CALCIUM ACETATE\MAGNESIUM CARBONATE
     Indication: End stage renal disease
     Dosage: 432/235, 6 X 1 DOSAGE FORM IN 1 DAY
     Route: 048
  6. ROCALTROL [Concomitant]
     Active Substance: CALCITRIOL
     Indication: End stage renal disease
     Dosage: 0,25 MG
     Route: 048
  7. CHOLECALCIFEROL [Concomitant]
     Active Substance: CHOLECALCIFEROL
     Indication: Prophylaxis
     Route: 048
  8. HYDROMORPHONE HYDROCHLORIDE [Concomitant]
     Active Substance: HYDROMORPHONE HYDROCHLORIDE
     Indication: Pain
     Dosage: 1,3 MG
     Route: 048
  9. NOVALGIN (AUSTRIA) [Concomitant]
     Indication: Pain
     Route: 048
  10. TEMESTA [Concomitant]
     Indication: Tension
     Route: 048
  11. SEROQUEL [Concomitant]
     Active Substance: QUETIAPINE FUMARATE
     Indication: Depression
     Route: 048
  12. PASSEDAN [Concomitant]
     Indication: Insomnia
     Route: 048
  13. POLYETHYLENE GLYCOL 3350\POTASSIUM CHLORIDE\SODIUM BICARBONATE\SODIUM [Concomitant]
     Active Substance: POLYETHYLENE GLYCOL 3350\POTASSIUM CHLORIDE\SODIUM BICARBONATE\SODIUM CHLORIDE
     Indication: Constipation
     Dosage: 1 BAG
     Route: 048
  14. ELOMEL [Concomitant]
     Indication: Prophylaxis
     Route: 042
     Dates: start: 202209
  15. HEMLIBRA [Concomitant]
     Active Substance: EMICIZUMAB-KXWH
     Route: 058
     Dates: start: 20220802, end: 20220922

REACTIONS (1)
  - Ischaemic cerebral infarction [Recovered/Resolved]

NARRATIVE: CASE EVENT DATE: 20220927
